FAERS Safety Report 16229049 (Version 2)
Quarter: 2019Q2

REPORT INFORMATION
  Report Type: Report from Study
  Country: US (occurrence: US)
  Receive Date: 20190423
  Receipt Date: 20190425
  Transmission Date: 20190711
  Serious: Yes (Other)
  Sender: FDA-Public Use
  Company Number: US-PFIZER INC-2019166939

PATIENT

DRUGS (11)
  1. DEXMEDETOMIDINE HYDROCHLORIDE. [Interacting]
     Active Substance: DEXMEDETOMIDINE HYDROCHLORIDE
     Dosage: UNK (INFUSION, 0.15 UG/MIN FROM 300 MIN TO 48 H)
  2. ISOFLURANE. [Concomitant]
     Active Substance: ISOFLURANE
     Indication: ANAESTHESIA
     Dosage: UNK
  3. DEXMEDETOMIDINE HYDROCHLORIDE. [Interacting]
     Active Substance: DEXMEDETOMIDINE HYDROCHLORIDE
     Indication: ANAESTHESIA
     Dosage: UNK (INFUSION, 0.8 UG/MIN FROM 20 TO 60 MIN),
  4. DEXMEDETOMIDINE HYDROCHLORIDE. [Interacting]
     Active Substance: DEXMEDETOMIDINE HYDROCHLORIDE
     Indication: ANALGESIC THERAPY
     Dosage: UNK (INFUSION, 0.35 UG/MIN FROM 60 TO 300 MIN)
  5. NITROUS OXIDE/OXYGEN [Concomitant]
     Indication: ANAESTHESIA
     Dosage: UNK (50% NITROUS OXIDE IN OXYGEN)
  6. FENTANYL CITRATE. [Interacting]
     Active Substance: FENTANYL CITRATE
     Indication: ANAESTHESIA
     Dosage: UNK (UP TO 5 UG/ KG, INFUSION)
  7. VECURONIUM [Concomitant]
     Active Substance: VECURONIUM BROMIDE
     Indication: HYPOTONIA
     Dosage: 0.1 MG/KG, UNK
  8. DEXMEDETOMIDINE HYDROCHLORIDE. [Suspect]
     Active Substance: DEXMEDETOMIDINE HYDROCHLORIDE
     Indication: HAEMODYNAMIC INSTABILITY
     Dosage: UNK (INFUSION, 1.2 UG/MIN FROM 0 TO 20 MIN),
  9. THIOPENTAL [Interacting]
     Active Substance: THIOPENTAL
     Indication: ANAESTHESIA
     Dosage: UNK (UP TO 5 MG/ KG)
  10. FENTANYL CITRATE. [Interacting]
     Active Substance: FENTANYL CITRATE
     Dosage: UNK, (ANESTHESIA WAS MAINTAINED WITH A CONTINUOUS IV INFUSION, 0.5 UG.KG1. H1)
  11. ISOFLURANE. [Concomitant]
     Active Substance: ISOFLURANE
     Indication: HAEMODYNAMIC INSTABILITY

REACTIONS (1)
  - Sinus arrest [Recovered/Resolved]
